FAERS Safety Report 5123500-8 (Version None)
Quarter: 2006Q4

REPORT INFORMATION
  Report Type: 
  Country: None (occurrence: None)
  Receive Date: 20061009
  Receipt Date: 20061002
  Transmission Date: 20070319
  Serious: Yes (Hospitalization)
  Sender: FDA-Public Use
  Company Number: GB-MERCK-0610GBR00026

PATIENT
  Age: 77 Year
  Sex: Male

DRUGS (4)
  1. PROSCAR [Suspect]
     Indication: BENIGN PROSTATIC HYPERPLASIA
     Route: 048
     Dates: start: 20051209, end: 20060109
  2. CIPROFLOXACIN [Suspect]
     Indication: ANTIBIOTIC PROPHYLAXIS
     Route: 048
     Dates: end: 20060109
  3. CETOSTEARYL ALCOHOL AND PHENOXYETHANOL AND SODIUM LAURYL SULFATE [Concomitant]
     Route: 061
     Dates: start: 20051206
  4. BETAMETHASONE VALERATE [Concomitant]
     Route: 061
     Dates: start: 20051206

REACTIONS (2)
  - HEPATIC FAILURE [None]
  - URINARY RETENTION [None]
